FAERS Safety Report 10004016 (Version 1)
Quarter: 2014Q1

REPORT INFORMATION
  Report Type: Spontaneous
  Country: US (occurrence: US)
  Receive Date: 20140312
  Receipt Date: 20140312
  Transmission Date: 20141002
  Serious: Yes (Other)
  Sender: FDA-Public Use
  Company Number: US-FRI-1000060356

PATIENT
  Sex: Male

DRUGS (2)
  1. FETZIMA [Suspect]
  2. FETZIMA [Suspect]

REACTIONS (1)
  - Testicular torsion [Unknown]
